FAERS Safety Report 8148176-7 (Version None)
Quarter: 2012Q1

REPORT INFORMATION
  Report Type: 
  Country: None (occurrence: None)
  Receive Date: 20120218
  Receipt Date: 20110512
  Transmission Date: 20120608
  Serious: No
  Sender: FDA-Public Use
  Company Number: US-ALLERGAN-1103023US

PATIENT
  Age: 76 Year
  Sex: Female

DRUGS (6)
  1. LORTAB [Concomitant]
     Indication: PAIN
     Dosage: UNK
     Route: 048
  2. AMITRIPTYLINE HCL [Concomitant]
     Indication: PRODUCT USED FOR UNKNOWN INDICATION
     Dosage: UNK
  3. PROZAC [Concomitant]
     Indication: DEPRESSION
     Dosage: 40 MG, QD
     Route: 048
  4. BOTULINUM TOXIN TYPE A [Suspect]
     Dosage: UNK
     Dates: start: 20090101, end: 20090101
  5. XANAX [Concomitant]
     Indication: ANXIETY
     Dosage: 0.5 MG, PRN
  6. BOTULINUM TOXIN TYPE A [Suspect]
     Indication: HEADACHE
     Dosage: 170 UNITS, SINGLE
     Route: 030
     Dates: start: 20110228, end: 20110228

REACTIONS (10)
  - FEELING COLD [None]
  - VISION BLURRED [None]
  - FATIGUE [None]
  - DIZZINESS [None]
  - DRUG INEFFECTIVE [None]
  - FEELING ABNORMAL [None]
  - ASTHENIA [None]
  - DIPLOPIA [None]
  - NAUSEA [None]
  - INFLUENZA LIKE ILLNESS [None]
